FAERS Safety Report 5136428-4 (Version None)
Quarter: 2006Q4

REPORT INFORMATION
  Report Type: 
  Country: None (occurrence: None)
  Receive Date: 20061027
  Receipt Date: 20051107
  Transmission Date: 20070319
  Serious: Yes (Hospitalization)
  Sender: FDA-Public Use
  Company Number: US-BRISTOL-MYERS SQUIBB COMPANY-13169735

PATIENT
  Age: 21 Year
  Sex: Female
  Weight: 57 kg

DRUGS (1)
  1. KENACORT [Suspect]
     Indication: SHOULDER OPERATION
     Route: 030
     Dates: start: 20050921

REACTIONS (1)
  - MUSCULAR WEAKNESS [None]
